FAERS Safety Report 15564702 (Version 1)
Quarter: 2018Q4

REPORT INFORMATION
  Report Type: Spontaneous
  Country: CH (occurrence: CH)
  Receive Date: 20181030
  Receipt Date: 20181030
  Transmission Date: 20190205
  Serious: Yes (Hospitalization)
  Sender: FDA-Public Use
  Company Number: CH-ROCHE-2205368

PATIENT
  Age: 93 Year
  Sex: Female
  Weight: 70 kg

DRUGS (4)
  1. PANTOPRAZOLE [Concomitant]
     Active Substance: PANTOPRAZOLE
     Route: 065
  2. ACTEMRA [Suspect]
     Active Substance: TOCILIZUMAB
     Indication: POLYMYALGIA RHEUMATICA
     Route: 041
     Dates: start: 20180810, end: 20180907
  3. CALCIMAGON D3 [Concomitant]
     Active Substance: CALCIUM\CHOLECALCIFEROL
     Route: 065
  4. PREDNISON [Concomitant]
     Active Substance: PREDNISONE
     Route: 048

REACTIONS (5)
  - Oedema peripheral [Recovered/Resolved]
  - Dermatitis bullous [Recovering/Resolving]
  - Dermo-hypodermitis [Recovering/Resolving]
  - Pulmonary embolism [Recovered/Resolved]
  - Thrombosis [Recovering/Resolving]

NARRATIVE: CASE EVENT DATE: 201809
